FAERS Safety Report 9299157 (Version 3)
Quarter: 2013Q2

REPORT INFORMATION
  Report Type: Report from Study
  Country: US (occurrence: US)
  Receive Date: 20130520
  Receipt Date: 20130530
  Transmission Date: 20140414
  Serious: Yes (Life-Threatening, Hospitalization, Other)
  Sender: FDA-Public Use
  Company Number: US-ACTELION-A-NJ2008-19061

PATIENT
  Age: 51 Year
  Sex: Female

DRUGS (5)
  1. TRACLEER [Suspect]
     Indication: PULMONARY ARTERIAL HYPERTENSION
     Dosage: 125 MG, BID
     Route: 048
     Dates: start: 2007
  2. VENTAVIS [Concomitant]
     Indication: PULMONARY ARTERIAL HYPERTENSION
     Dosage: 6XDAILY
     Route: 055
     Dates: start: 20110830
  3. ADCIRCA [Concomitant]
  4. REVATIO [Concomitant]
  5. TYVASO [Concomitant]

REACTIONS (15)
  - Pulmonary oedema [Recovering/Resolving]
  - Upper respiratory tract infection [Recovering/Resolving]
  - Pyrexia [Recovering/Resolving]
  - Productive cough [Recovering/Resolving]
  - Rhinorrhoea [Recovering/Resolving]
  - Epistaxis [Recovering/Resolving]
  - Dyspnoea [Recovering/Resolving]
  - Oxygen saturation decreased [Recovering/Resolving]
  - Sinusitis [Recovering/Resolving]
  - Nasal congestion [Recovering/Resolving]
  - Bronchitis [Recovering/Resolving]
  - Pneumonia [Recovered/Resolved]
  - Cardiac failure [Recovering/Resolving]
  - Pulmonary arterial hypertension [Recovering/Resolving]
  - Condition aggravated [Recovering/Resolving]
